FAERS Safety Report 7114397-5 (Version None)
Quarter: 2010Q4

REPORT INFORMATION
  Report Type: 
  Country: None (occurrence: None)
  Receive Date: 20101119
  Receipt Date: 20101105
  Transmission Date: 20110411
  Serious: No
  Sender: FDA-Public Use
  Company Number: DE-ELI_LILLY_AND_COMPANY-DE201011001779

PATIENT
  Age: 15 Year
  Sex: Male

DRUGS (5)
  1. ZYPREXA [Suspect]
     Indication: SCHIZOAFFECTIVE DISORDER
     Dosage: 10 MG, UNK
     Route: 048
     Dates: start: 20101007, end: 20101012
  2. ZYPREXA [Suspect]
     Dosage: 20 MG, UNK
     Route: 048
     Dates: start: 20101013, end: 20101024
  3. ZYPREXA [Suspect]
     Dosage: 30 MG, UNK
     Route: 048
     Dates: start: 20101025
  4. TAVOR [Concomitant]
     Dosage: 2.5 MG, UNK
     Dates: start: 20100923
  5. ARIPIPRAZOLE [Concomitant]

REACTIONS (4)
  - BLOOD CREATINE PHOSPHOKINASE MB INCREASED [None]
  - EOSINOPHILIA [None]
  - NEUTROPHIL COUNT DECREASED [None]
  - OVERDOSE [None]
